FAERS Safety Report 8158390-2 (Version None)
Quarter: 2012Q1

REPORT INFORMATION
  Report Type: 
  Country: None (occurrence: None)
  Receive Date: 20120217
  Receipt Date: 20120118
  Transmission Date: 20120608
  Serious: Yes (Hospitalization)
  Sender: FDA-Public Use
  Company Number: 001097865

PATIENT
  Sex: Female

DRUGS (7)
  1. PROACTIV 90 DAY KIT (PA90) [Suspect]
  2. PROACTIV 90 DAY KIT (PA90) [Suspect]
     Indication: ACNE
     Dosage: DAILY
  3. PROACTIV 90 DAY KIT (PA90) [Suspect]
  4. PROACTIV 90 DAY KIT (PA90) [Suspect]
  5. PROACTIV 90 DAY KIT (PA90) [Suspect]
  6. PROACTIV 90 DAY KIT (PA90) [Suspect]
  7. PROACTIV 90 DAY KIT (PA90) [Suspect]

REACTIONS (4)
  - ACNE [None]
  - SWELLING FACE [None]
  - INFECTION [None]
  - CONDITION AGGRAVATED [None]
